FAERS Safety Report 5705738-1 (Version None)
Quarter: 2008Q2

REPORT INFORMATION
  Report Type: 
  Country: None (occurrence: None)
  Receive Date: 20080415
  Receipt Date: 20080404
  Transmission Date: 20081010
  Serious: Yes (Hospitalization)
  Sender: FDA-Public Use
  Company Number: B0515823A

PATIENT
  Age: 26 Year
  Sex: Female

DRUGS (7)
  1. AUGMENTIN '125' [Suspect]
     Indication: UPPER RESPIRATORY TRACT INFECTION
     Route: 048
     Dates: start: 20070301, end: 20070301
  2. TEGRETOL [Suspect]
     Indication: CONVULSION
     Dosage: 1TAB PER DAY
     Route: 048
     Dates: start: 20070214, end: 20070317
  3. ZYPREXA [Concomitant]
     Indication: PSYCHOTIC DISORDER
     Route: 065
     Dates: start: 20070129
  4. XANAX [Concomitant]
     Indication: PSYCHOTIC DISORDER
     Dosage: 25MG TWICE PER DAY
     Route: 065
     Dates: start: 20070129
  5. LARGACTIL [Concomitant]
     Indication: PSYCHOTIC DISORDER
     Dosage: 20DROP TWICE PER DAY
     Route: 065
     Dates: start: 20070129
  6. RIVOTRIL [Concomitant]
     Indication: PSYCHOTIC DISORDER
     Dosage: 4MG PER DAY
     Route: 048
     Dates: start: 20070129
  7. NOCTRAN [Concomitant]
     Indication: PSYCHOTIC DISORDER
     Dosage: 1TAB PER DAY
     Route: 048
     Dates: start: 20070129

REACTIONS (18)
  - ALANINE AMINOTRANSFERASE INCREASED [None]
  - BLOOD PRESSURE DIASTOLIC DECREASED [None]
  - DRUG HYPERSENSITIVITY [None]
  - DRUG RASH WITH EOSINOPHILIA AND SYSTEMIC SYMPTOMS [None]
  - GAMMA-GLUTAMYLTRANSFERASE INCREASED [None]
  - HEART RATE INCREASED [None]
  - HEPATOCELLULAR INJURY [None]
  - HUMAN HERPES VIRUS 6 SEROLOGY POSITIVE [None]
  - HYPERSENSITIVITY [None]
  - INFLAMMATION [None]
  - PRURIGO [None]
  - PYREXIA [None]
  - RASH MACULO-PAPULAR [None]
  - SKIN DEPIGMENTATION [None]
  - SKIN HYPOPIGMENTATION [None]
  - SWELLING FACE [None]
  - UPPER RESPIRATORY TRACT INFECTION [None]
  - URTICARIA [None]
